FAERS Safety Report 6131737-4 (Version None)
Quarter: 2009Q1

REPORT INFORMATION
  Report Type: 
  Country: None (occurrence: None)
  Receive Date: 20090325
  Receipt Date: 20090316
  Transmission Date: 20090719
  Serious: Yes (Hospitalization)
  Sender: FDA-Public Use
  Company Number: PHHY2009CA04567

PATIENT
  Sex: Male

DRUGS (9)
  1. EXJADE [Suspect]
     Indication: IRON OVERLOAD
     Route: 048
  2. METOPROLOL TARTRATE [Concomitant]
     Dosage: 100 MG, QD
     Route: 048
  3. RAMIPRIL [Concomitant]
     Dosage: 5 MG, QD
     Route: 048
  4. NORVASK [Concomitant]
     Dosage: 5 MG, QD
     Route: 048
  5. DOXAZOSIN MESILATE [Concomitant]
     Dosage: 2 MG, QD
     Route: 048
  6. ZOCOR [Concomitant]
     Dosage: 20 MG, QD
     Route: 048
  7. FUROSEMIDE [Concomitant]
     Dosage: 40 MG, TID
     Route: 048
  8. NITROGLYCERIN [Concomitant]
     Dosage: 0.8
  9. ACE INHIBITORS AND DIURETICS [Concomitant]

REACTIONS (3)
  - CARDIAC FAILURE CHRONIC [None]
  - OEDEMA [None]
  - RENAL FAILURE [None]
